FAERS Safety Report 7736744-3 (Version None)
Quarter: 2011Q3

REPORT INFORMATION
  Report Type: 
  Country: None (occurrence: None)
  Receive Date: 20110908
  Receipt Date: 20110826
  Transmission Date: 20111222
  Serious: Yes (Hospitalization)
  Sender: FDA-Public Use
  Company Number: PHBS2007JP07257

PATIENT
  Age: 43 Year
  Sex: Male

DRUGS (12)
  1. IMMUNE GLOBULIN INTRAVENOUS (HUMAN) [Concomitant]
     Dosage: 2.5 G AT 2 VIALS
     Dates: start: 20060621
  2. PROGRAF [Suspect]
     Dosage: 7 MG/KG, UNK
     Route: 048
  3. PROGRAF [Suspect]
     Dosage: 6 MG/KG, UNK
  4. ADRENAL HORMONE PREPARATIONS [Suspect]
     Indication: RENAL AND PANCREAS TRANSPLANT
     Dosage: UNK UKN, UNK
     Route: 042
     Dates: start: 20060126
  5. CELLCEPT [Suspect]
     Dosage: 1000 MG
     Dates: start: 20060129
  6. SIMULECT [Suspect]
     Dosage: 20 MG, ONCE/SINGLE
     Route: 042
     Dates: start: 20060129, end: 20060129
  7. PREDNISOLONE [Suspect]
     Indication: RENAL TRANSPLANT
     Dosage: 10 TO 30 MG DAILY
     Route: 048
  8. PROGRAF [Suspect]
     Indication: RENAL AND PANCREAS TRANSPLANT
     Dosage: 7.5 MG
     Route: 042
     Dates: start: 20060125, end: 20060125
  9. IMMUNE GLOBULIN INTRAVENOUS (HUMAN) [Concomitant]
     Dosage: 2.5 G AT 2 VIALS
     Dates: start: 20060628
  10. ADRENAL HORMONE PREPARATIONS [Suspect]
     Dosage: 30 TO 50 MG DAILY
  11. CELLCEPT [Suspect]
     Indication: RENAL AND PANCREAS TRANSPLANT
     Dosage: 1000 MG
     Route: 048
     Dates: start: 20060125, end: 20060125
  12. SIMULECT [Suspect]
     Indication: RENAL AND PANCREAS TRANSPLANT
     Dosage: 20 MG, ONCE/SINGLE
     Route: 042
     Dates: start: 20060125, end: 20060125

REACTIONS (11)
  - SERRATIA INFECTION [None]
  - URINE OUTPUT DECREASED [None]
  - PSOAS ABSCESS [None]
  - CYTOMEGALOVIRUS INFECTION [None]
  - WOUND DEHISCENCE [None]
  - POSTOPERATIVE WOUND INFECTION [None]
  - BACK PAIN [None]
  - SOFT TISSUE NECROSIS [None]
  - URETHRAL STENOSIS [None]
  - PURULENT DISCHARGE [None]
  - PYREXIA [None]
